FAERS Safety Report 6218822-3 (Version None)
Quarter: 2009Q2

REPORT INFORMATION
  Report Type: 
  Country: None (occurrence: None)
  Receive Date: 20090608
  Receipt Date: 20090525
  Transmission Date: 20091009
  Serious: Yes (Death)
  Sender: FDA-Public Use
  Company Number: SE-ELI_LILLY_AND_COMPANY-SE200905005871

PATIENT
  Age: 31 Year
  Sex: Female

DRUGS (5)
  1. ZYPREXA [Suspect]
     Indication: PSYCHOTIC DISORDER
     Dosage: 5 MG, DAILY (1/D)
     Route: 048
     Dates: start: 20020717, end: 20021201
  2. ZYPREXA [Suspect]
     Dosage: UNK, 2/D
     Dates: end: 20021201
  3. NITRAZEPAM [Concomitant]
     Dosage: 5 MG, AS NEEDED
  4. THERALEN [Concomitant]
     Dosage: UNK, AS NEEDED
     Route: 048
  5. LERGIGAN [Concomitant]
     Dosage: 25 MG, AS NEEDED

REACTIONS (2)
  - DRUG INEFFECTIVE [None]
  - SUDDEN DEATH [None]
